FAERS Safety Report 6244712-6 (Version None)
Quarter: 2009Q2

REPORT INFORMATION
  Report Type: 
  Country: None (occurrence: None)
  Receive Date: 20090623
  Receipt Date: 20090615
  Transmission Date: 20091009
  Serious: Yes (Life-Threatening, Hospitalization)
  Sender: FDA-Public Use
  Company Number: TUK2009A00100

PATIENT
  Age: 55 Year
  Sex: Female

DRUGS (1)
  1. ACTOS [Suspect]
     Indication: DIABETES MELLITUS
     Dosage: 60 MG, ORAL
     Route: 048

REACTIONS (2)
  - OVERDOSE [None]
  - PULMONARY EMBOLISM [None]
